FAERS Safety Report 18758208 (Version 2)
Quarter: 2021Q1

REPORT INFORMATION
  Report Type: Report from Study
  Country: CO (occurrence: CO)
  Receive Date: 20210119
  Receipt Date: 20210204
  Transmission Date: 20210419
  Serious: No
  Sender: FDA-Public Use
  Company Number: CO-TAKEDA-CO201932344

PATIENT
  Age: 30 Year
  Sex: Female
  Weight: 80 kg

DRUGS (7)
  1. ICATIBANT [Suspect]
     Active Substance: ICATIBANT ACETATE
     Indication: HEREDITARY ANGIOEDEMA
     Dosage: 30MG/3ML, 1 DOSAGE FORM FOR EPISODE
     Route: 058
     Dates: start: 2016
  2. ICATIBANT [Suspect]
     Active Substance: ICATIBANT ACETATE
     Dosage: 30 MILLIGRAM, EVERY 6 HOURS
     Route: 058
     Dates: start: 2017
  3. GESTAVIT DHA [Concomitant]
     Indication: PREGNANCY
     Dosage: UNK
     Route: 065
  4. ICATIBANT [Suspect]
     Active Substance: ICATIBANT ACETATE
     Dosage: 30MG/3ML, 1 DOSAGE FORM FOR EPISODE
     Route: 058
     Dates: start: 201910, end: 20191010
  5. ICATIBANT [Suspect]
     Active Substance: ICATIBANT ACETATE
     Dosage: 30MG/3ML, 1 DOSAGE FORM FOR EPISODE
     Route: 058
     Dates: start: 201910, end: 20191010
  6. ICATIBANT [Suspect]
     Active Substance: ICATIBANT ACETATE
     Dosage: 30 MILLIGRAM, EVERY 6 HOURS
     Route: 058
     Dates: start: 2017
  7. ICATIBANT [Suspect]
     Active Substance: ICATIBANT ACETATE
     Indication: HEREDITARY ANGIOEDEMA
     Dosage: 30MG/3ML, 1 DOSAGE FORM FOR EPISODE
     Route: 058
     Dates: start: 2016

REACTIONS (3)
  - Weight decreased [Recovered/Resolved]
  - Exposure during pregnancy [Recovering/Resolving]
  - Hereditary angioedema [Recovered/Resolved]

NARRATIVE: CASE EVENT DATE: 20190802
